FAERS Safety Report 5498901-9 (Version None)
Quarter: 2007Q4

REPORT INFORMATION
  Report Type: 
  Country: None (occurrence: None)
  Receive Date: 20071026
  Receipt Date: 20070803
  Transmission Date: 20080405
  Serious: No
  Sender: FDA-Public Use
  Company Number: A0668115A

PATIENT
  Age: 67 Year
  Sex: Male

DRUGS (6)
  1. ADVAIR DISKUS 100/50 [Suspect]
     Indication: CHRONIC OBSTRUCTIVE PULMONARY DISEASE
     Dosage: 1PUFF TWICE PER DAY
     Route: 055
     Dates: start: 20070501
  2. FLOVENT [Suspect]
     Indication: DRUG USE FOR UNKNOWN INDICATION
     Dosage: 2PUFF TWICE PER DAY
     Route: 055
     Dates: start: 20070413, end: 20070501
  3. VITAMINS [Concomitant]
  4. PRILOSEC [Concomitant]
  5. UNKNOWN MEDICATION [Concomitant]
     Indication: RESTLESS LEGS SYNDROME
  6. ALBUTEROL [Concomitant]

REACTIONS (8)
  - APHONIA [None]
  - BRONCHITIS [None]
  - DYSPNOEA [None]
  - LUNG INFECTION [None]
  - NASOPHARYNGITIS [None]
  - PHARMACEUTICAL PRODUCT COMPLAINT [None]
  - PRODUCTIVE COUGH [None]
  - THROAT IRRITATION [None]
